FAERS Safety Report 21286885 (Version 1)
Quarter: 2022Q3

REPORT INFORMATION
  Report Type: Spontaneous
  Country: US (occurrence: None)
  Receive Date: 20220902
  Receipt Date: 20220902
  Transmission Date: 20221026
  Serious: Yes (Death, Hospitalization)
  Sender: FDA-Public Use
  Company Number: None

PATIENT
  Age: 77 Year
  Sex: Female
  Weight: 95.7 kg

DRUGS (2)
  1. FEMARA [Suspect]
     Active Substance: LETROZOLE
     Dosage: OTHER QUANTITY : 2.5MG;?
     Dates: end: 20220818
  2. PALBOCICLIB [Suspect]
     Active Substance: PALBOCICLIB
     Dates: end: 20220818

REACTIONS (9)
  - Sepsis [None]
  - Urinary tract infection [None]
  - Hypoxia [None]
  - Vomiting [None]
  - Aspiration [None]
  - Pulseless electrical activity [None]
  - Encephalopathy [None]
  - Cerebral disorder [None]
  - Unresponsive to stimuli [None]

NARRATIVE: CASE EVENT DATE: 20220819
